FAERS Safety Report 8876668 (Version 1)
Quarter: 2012Q4

REPORT INFORMATION
  Report Type: 
  Country: US (occurrence: US)
  Receive Date: 20121023
  Receipt Date: 20121023
  Transmission Date: 20130627
  Serious: No
  Sender: FDA-Public Use
  Company Number: US-AMGEN-USASP2011062077

PATIENT
  Age: 48 Year
  Sex: Male

DRUGS (2)
  1. ENBREL [Suspect]
     Indication: SYSTEMIC LUPUS ERYTHEMATOSUS
     Dosage: 50 mg, qwk
     Dates: start: 20110922
  2. TREXALL [Concomitant]
     Dosage: UNK
     Dates: start: 201103

REACTIONS (4)
  - Erythema [Not Recovered/Not Resolved]
  - Dry skin [Not Recovered/Not Resolved]
  - Therapeutic response decreased [Not Recovered/Not Resolved]
  - Bone pain [Not Recovered/Not Resolved]
